FAERS Safety Report 4909317-5 (Version None)
Quarter: 2006Q1

REPORT INFORMATION
  Report Type: 
  Country: None (occurrence: None)
  Receive Date: 20060210
  Receipt Date: 20060210
  Transmission Date: 20060701
  Serious: Yes (Hospitalization)
  Sender: FDA-Public Use
  Company Number: None

PATIENT
  Age: 74 Year
  Sex: Male
  Weight: 53.6 kg

DRUGS (13)
  1. GATIFLOXACIN [Suspect]
     Indication: BACTERAEMIA
     Dosage: 400MG DAILY PO
     Route: 048
     Dates: start: 20060108, end: 20060111
  2. BACTRIM [Suspect]
     Indication: CELLULITIS
     Dosage: 800MG/80MG
     Dates: start: 20060110, end: 20060111
  3. GATIFLOXACIN [Concomitant]
  4. SULFAMETHOXAZOLE 400/TRIMETH [Concomitant]
  5. OMEPRAZOLE [Concomitant]
  6. MEGESTROL ACETATE [Concomitant]
  7. ALBUTEROL [Concomitant]
  8. IPRATROPIUM BROMIDE [Concomitant]
  9. PROMETHAZINE [Concomitant]
  10. CHLORAMBUCIL [Concomitant]
  11. HYDROCORTISONE 1/PRAMOXINE [Concomitant]
  12. CALCIUM 500MG/VITAMIN D [Concomitant]
  13. MIRTAZAPINE [Concomitant]

REACTIONS (1)
  - STEVENS-JOHNSON SYNDROME [None]
